FAERS Safety Report 6715423-5 (Version None)
Quarter: 2010Q2

REPORT INFORMATION
  Report Type: 
  Country: None (occurrence: None)
  Receive Date: 20100507
  Receipt Date: 20100428
  Transmission Date: 20101027
  Serious: Yes (Disabling, Other)
  Sender: FDA-Public Use
  Company Number: US-JNJFOC-20100500175

PATIENT
  Sex: Female

DRUGS (7)
  1. TOPIRAMATE [Suspect]
     Indication: DRUG USE FOR UNKNOWN INDICATION
     Route: 048
  2. CONCERTA [Suspect]
     Indication: BIPOLAR DISORDER
     Dosage: IN THE MORNING
     Route: 048
  3. CONCERTA [Suspect]
     Indication: DEPRESSION
     Dosage: IN THE MORNING
     Route: 048
  4. GEODON [Suspect]
     Indication: BIPOLAR DISORDER
     Route: 065
  5. ALPRAZOLAM [Suspect]
     Indication: DRUG USE FOR UNKNOWN INDICATION
     Route: 065
  6. ABILIFY [Suspect]
     Indication: DRUG USE FOR UNKNOWN INDICATION
     Route: 065
  7. LAMICTAL [Concomitant]
     Indication: BIPOLAR DISORDER
     Dosage: IN THE MORNING
     Route: 065

REACTIONS (6)
  - ACTIVITIES OF DAILY LIVING IMPAIRED [None]
  - ARTHRALGIA [None]
  - DYSARTHRIA [None]
  - GOUT [None]
  - IMPAIRED DRIVING ABILITY [None]
  - WEIGHT INCREASED [None]
